FAERS Safety Report 17950090 (Version 1)
Quarter: 2020Q2

REPORT INFORMATION
  Report Type: Spontaneous
  Country: IT (occurrence: IT)
  Receive Date: 20200626
  Receipt Date: 20200626
  Transmission Date: 20200714
  Serious: Yes (Hospitalization, Other)
  Sender: FDA-Public Use
  Company Number: NVSC2020IT174072

PATIENT
  Age: 58 Year
  Sex: Male

DRUGS (11)
  1. HYDROCHLOROTHIAZIDE,OLMESARTAN MEDOXOMIL [Suspect]
     Active Substance: HYDROCHLOROTHIAZIDE\OLMESARTAN MEDOXOMIL
     Indication: PRODUCT USED FOR UNKNOWN INDICATION
     Dosage: 64 DF, 1 TOTAL
     Route: 048
     Dates: start: 20180118, end: 20180118
  2. ATORVASTATIN [Suspect]
     Active Substance: ATORVASTATIN
     Indication: PRODUCT USED FOR UNKNOWN INDICATION
     Dosage: 50 DF, 1 TOTAL
     Route: 048
     Dates: start: 20180118, end: 20180118
  3. TRIAZOLAM. [Suspect]
     Active Substance: TRIAZOLAM
     Indication: PRODUCT USED FOR UNKNOWN INDICATION
     Dosage: 20 DF, 1 TOTAL
     Route: 048
     Dates: start: 20180118, end: 20180118
  4. AMLODIPINE [Suspect]
     Active Substance: AMLODIPINE BESYLATE
     Indication: PRODUCT USED FOR UNKNOWN INDICATION
     Dosage: 14 DF, 1 TOTAL
     Route: 048
     Dates: start: 20180118, end: 20180118
  5. BISOPROLOL FUMARATE. [Suspect]
     Active Substance: BISOPROLOL FUMARATE
     Indication: PRODUCT USED FOR UNKNOWN INDICATION
     Dosage: 28 DF, 1 TOTAL
     Route: 048
     Dates: start: 20180118, end: 20180118
  6. IDROCLOROTIAZIDE [Suspect]
     Active Substance: HYDROCHLOROTHIAZIDE
     Indication: PRODUCT USED FOR UNKNOWN INDICATION
     Dosage: 64 DF, 1 TOTAL
     Route: 048
     Dates: start: 20180118, end: 20180118
  7. AMIODARONE HYDROCHLORIDE. [Suspect]
     Active Substance: AMIODARONE HYDROCHLORIDE
     Indication: PRODUCT USED FOR UNKNOWN INDICATION
     Dosage: 20 DF, 1 TOTAL
     Route: 048
     Dates: start: 20180118, end: 20180118
  8. PALEXIA [Suspect]
     Active Substance: TAPENTADOL HYDROCHLORIDE
     Indication: PRODUCT USED FOR UNKNOWN INDICATION
     Dosage: 80 DF, 1 TOTAL
     Route: 048
     Dates: start: 20180118, end: 20180118
  9. ELIQUIS [Suspect]
     Active Substance: APIXABAN
     Indication: PRODUCT USED FOR UNKNOWN INDICATION
     Dosage: 60 DF, 1 TOTAL
     Route: 048
     Dates: start: 20180118, end: 20180118
  10. TAMSULOSIN HYDROCHLORIDE. [Concomitant]
     Active Substance: TAMSULOSIN HYDROCHLORIDE
     Indication: BENIGN PROSTATIC HYPERPLASIA
     Dosage: UNK
     Route: 048
  11. HYDROCHLOROTHIAZIDE. [Suspect]
     Active Substance: HYDROCHLOROTHIAZIDE
     Indication: PRODUCT USED FOR UNKNOWN INDICATION
     Dosage: 64 DF, 1 TOTAL
     Route: 048
     Dates: start: 20180118, end: 20180118

REACTIONS (4)
  - Intentional overdose [Unknown]
  - Confusional state [Recovering/Resolving]
  - Urinary incontinence [Recovering/Resolving]
  - Drug abuse [Unknown]

NARRATIVE: CASE EVENT DATE: 20180118
